FAERS Safety Report 13078233 (Version 1)
Quarter: 2017Q1

REPORT INFORMATION
  Report Type: Spontaneous
  Country: US (occurrence: US)
  Receive Date: 20170102
  Receipt Date: 20170102
  Transmission Date: 20170428
  Serious: Yes (Hospitalization, Other)
  Sender: FDA-Public Use
  Company Number: US-AUROBINDO-AUR-APL-2016-16043

PATIENT
  Age: 71 Year
  Sex: Female

DRUGS (1)
  1. PREDNISONE. [Suspect]
     Active Substance: PREDNISONE
     Indication: PRODUCT USED FOR UNKNOWN INDICATION
     Route: 065

REACTIONS (14)
  - Human ehrlichiosis [Unknown]
  - Bandaemia [Unknown]
  - Back pain [Unknown]
  - Multi-organ disorder [Unknown]
  - Muscular weakness [Unknown]
  - Mental status changes [Unknown]
  - Transaminases increased [Unknown]
  - Rash maculo-papular [Unknown]
  - Acute kidney injury [Unknown]
  - Dysarthria [Unknown]
  - Sepsis [Unknown]
  - Atrial fibrillation [Unknown]
  - Pyrexia [Unknown]
  - Pancytopenia [Unknown]
